FAERS Safety Report 6490132-9 (Version None)
Quarter: 2009Q4

REPORT INFORMATION
  Report Type: 
  Country: None (occurrence: None)
  Receive Date: 20091211
  Receipt Date: 20090602
  Transmission Date: 20100525
  Serious: No
  Sender: FDA-Public Use
  Company Number: A0788023A

PATIENT
  Age: 56 Year
  Sex: Male

DRUGS (2)
  1. FLONASE [Suspect]
     Indication: DRUG USE FOR UNKNOWN INDICATION
     Route: 065
  2. ADVAIR DISKUS 100/50 [Concomitant]
     Route: 055

REACTIONS (1)
  - LIP SWELLING [None]
